FAERS Safety Report 6252101-3 (Version None)
Quarter: 2009Q2

REPORT INFORMATION
  Report Type: 
  Country: None (occurrence: None)
  Receive Date: 20090630
  Receipt Date: 20060224
  Transmission Date: 20091009
  Serious: Yes (Hospitalization)
  Sender: FDA-Public Use
  Company Number: US-ROCHE-638973

PATIENT
  Sex: Male

DRUGS (6)
  1. ENFUVIRTIDE [Suspect]
     Route: 065
     Dates: start: 20060207, end: 20080814
  2. APTIVUS [Concomitant]
     Dates: start: 20060207, end: 20080814
  3. NORVIR [Concomitant]
     Dates: start: 20060207, end: 20080814
  4. TRIZIVIR [Concomitant]
     Dates: start: 20060207, end: 20060505
  5. VIREAD [Concomitant]
     Dosage: FREQUENCY REPORTED AS QD
     Dates: start: 20060207, end: 20080814
  6. SEPTRA [Concomitant]
     Dosage: FREQUENCY REPORTED AS QD
     Dates: start: 20050419, end: 20080814

REACTIONS (5)
  - ACQUIRED IMMUNODEFICIENCY SYNDROME [None]
  - DEHYDRATION [None]
  - PYREXIA [None]
  - RHINITIS [None]
  - SYNCOPE [None]
